FAERS Safety Report 23209793 (Version 2)
Quarter: 2023Q4

REPORT INFORMATION
  Report Type: Spontaneous
  Country: PK (occurrence: PK)
  Receive Date: 20231121
  Receipt Date: 20231208
  Transmission Date: 20240109
  Serious: Yes (Death, Other)
  Sender: FDA-Public Use
  Company Number: PK-PFIZER INC-202300366397

PATIENT

DRUGS (1)
  1. ENBREL [Suspect]
     Active Substance: ETANERCEPT
     Indication: Exposure during pregnancy
     Dosage: UNK
     Route: 064

REACTIONS (1)
  - Placental insufficiency [Fatal]
